FAERS Safety Report 9627623 (Version 2)
Quarter: 2013Q4

REPORT INFORMATION
  Report Type: Not Available
  Country: US (occurrence: US)
  Receive Date: 20131016
  Receipt Date: 20131016
  Transmission Date: 20140711
  Serious: Yes (Hospitalization)
  Sender: FDA-Public Use
  Company Number: US-LUNDBECK-DKLU1090616

PATIENT
  Age: 39 Year
  Sex: Female
  Weight: 96 kg

DRUGS (12)
  1. SABRIL [Suspect]
     Indication: COMPLEX PARTIAL SEIZURES
     Route: 048
     Dates: start: 20120423, end: 20120502
  2. SABRIL [Suspect]
     Route: 048
     Dates: start: 20120503, end: 20120506
  3. SABRIL [Suspect]
     Route: 048
     Dates: start: 20120507, end: 20120513
  4. SABRIL [Suspect]
     Route: 048
     Dates: start: 20120514, end: 20120520
  5. SABRIL [Suspect]
     Route: 048
     Dates: start: 20120521, end: 20120527
  6. SABRIL [Suspect]
     Route: 048
     Dates: start: 20120528, end: 20130506
  7. CLONAZEPAM [Concomitant]
     Indication: CONVULSION
     Route: 048
  8. LAMOTRIGINE [Concomitant]
     Indication: CONVULSION
     Route: 048
  9. LEVETIRACETAM [Concomitant]
     Indication: CONVULSION
     Route: 048
  10. EPITOL [Concomitant]
     Indication: CONVULSION
     Route: 048
  11. PAROXITINE [Concomitant]
     Indication: ANXIETY
     Route: 048
  12. CLARITIN [Concomitant]
     Indication: SINUS HEADACHE
     Route: 048

REACTIONS (1)
  - Somnolence [Recovered/Resolved]
